FAERS Safety Report 5612568-8 (Version None)
Quarter: 2008Q1

REPORT INFORMATION
  Report Type: 
  Country: None (occurrence: None)
  Receive Date: 20080201
  Receipt Date: 20080201
  Transmission Date: 20080703
  Serious: No
  Sender: FDA-Public Use
  Company Number: None

PATIENT
  Age: 72 Year
  Sex: Male
  Weight: 81.6 kg

DRUGS (2)
  1. DICLOFENAC SODIUM [Suspect]
     Dosage: 75MG EVERY DAY PO
     Route: 048
     Dates: start: 20070112, end: 20080102
  2. DICLOFENAC SODIUM [Suspect]
     Dosage: TOP
     Route: 061
     Dates: start: 20040804, end: 20070214

REACTIONS (8)
  - CORONARY ARTERY DISEASE [None]
  - DILATATION VENTRICULAR [None]
  - DRUG HYPERSENSITIVITY [None]
  - DYSPNOEA [None]
  - ERYTHEMA [None]
  - LOSS OF CONSCIOUSNESS [None]
  - MYOCARDIAL ISCHAEMIA [None]
  - SYNCOPE [None]
